FAERS Safety Report 20866922 (Version 2)
Quarter: 2022Q3

REPORT INFORMATION
  Report Type: Report from Study
  Country: CA (occurrence: CA)
  Receive Date: 20220524
  Receipt Date: 20220803
  Transmission Date: 20221026
  Serious: Yes (Death, Hospitalization, Other)
  Sender: FDA-Public Use
  Company Number: CA-ELI_LILLY_AND_COMPANY-CA202108009949

PATIENT
  Age: 59 Year
  Sex: Female

DRUGS (2)
  1. VERZENIO [Suspect]
     Active Substance: ABEMACICLIB
     Indication: Product used for unknown indication
     Dosage: 200 MG, UNKNOWN
     Route: 048
     Dates: start: 20210814
  2. VERZENIO [Suspect]
     Active Substance: ABEMACICLIB
     Dosage: 150 MG, UNKNOWN
     Route: 048

REACTIONS (26)
  - Thrombosis [Fatal]
  - Pneumonia [Unknown]
  - Cerebral haemorrhage [Recovered/Resolved]
  - Generalised tonic-clonic seizure [Recovered/Resolved]
  - Pyrexia [Unknown]
  - Haemoglobin decreased [Unknown]
  - White blood cell count decreased [Unknown]
  - Diarrhoea [Unknown]
  - Headache [Recovering/Resolving]
  - Constipation [Recovering/Resolving]
  - Head discomfort [Not Recovered/Not Resolved]
  - Delirium [Not Recovered/Not Resolved]
  - Communication disorder [Not Recovered/Not Resolved]
  - Ear pain [Not Recovered/Not Resolved]
  - Pain in jaw [Not Recovered/Not Resolved]
  - Muscle spasms [Unknown]
  - Pain [Recovered/Resolved]
  - Discomfort [Recovered/Resolved]
  - Drug hypersensitivity [Unknown]
  - Disturbance in attention [Unknown]
  - Balance disorder [Unknown]
  - Somnolence [Unknown]
  - Sluggishness [Recovering/Resolving]
  - Diarrhoea [Recovering/Resolving]
  - Asthenia [Recovering/Resolving]
  - Nausea [Not Recovered/Not Resolved]

NARRATIVE: CASE EVENT DATE: 20210914
